FAERS Safety Report 9394863 (Version 2)
Quarter: 2013Q3

REPORT INFORMATION
  Report Type: Spontaneous
  Country: IT (occurrence: IT)
  Receive Date: 20130711
  Receipt Date: 20130802
  Transmission Date: 20140515
  Serious: No
  Sender: FDA-Public Use
  Company Number: IT-PFIZER INC-2013202045

PATIENT
  Age: 62 Year
  Sex: Female

DRUGS (1)
  1. CISPLATIN [Suspect]
     Indication: LUNG NEOPLASM MALIGNANT
     Dosage: 30 MG TOTAL
     Route: 042
     Dates: start: 20130625, end: 20130625

REACTIONS (6)
  - Abdominal pain upper [Unknown]
  - Agitation [Unknown]
  - Diarrhoea [Unknown]
  - Erythema [Unknown]
  - Hypotension [Unknown]
  - Nausea [Unknown]
